FAERS Safety Report 11244589 (Version 2)
Quarter: 2015Q3

REPORT INFORMATION
  Report Type: Spontaneous
  Country: US (occurrence: US)
  Receive Date: 20150707
  Receipt Date: 20150824
  Transmission Date: 20151125
  Serious: Yes (Hospitalization)
  Sender: FDA-Public Use
  Company Number: US-PFIZER INC-2015221036

PATIENT
  Age: 77 Year
  Sex: Male

DRUGS (1)
  1. SUTENT [Suspect]
     Active Substance: SUNITINIB MALATE
     Indication: RENAL CANCER
     Dosage: 50 MG, 1X/DAY
     Dates: start: 20150602

REACTIONS (2)
  - Muscle spasms [Not Recovered/Not Resolved]
  - Anaemia [Not Recovered/Not Resolved]
